FAERS Safety Report 15863855 (Version 2)
Quarter: 2019Q1

REPORT INFORMATION
  Report Type: Spontaneous
  Country: US (occurrence: US)
  Receive Date: 20190124
  Receipt Date: 20190301
  Transmission Date: 20190417
  Serious: No
  Sender: FDA-Public Use
  Company Number: US-ASTRAZENECA-2019SE13033

PATIENT
  Age: 2917 Week
  Sex: Female
  Weight: 103 kg

DRUGS (2)
  1. BYDUREON BCISE [Suspect]
     Active Substance: EXENATIDE
     Indication: TYPE 2 DIABETES MELLITUS
     Route: 058
     Dates: start: 201809, end: 201901
  2. SULFAMETHOXAZOLE-TRIMETHOPRIM [Concomitant]
     Active Substance: SULFAMETHOXAZOLE\TRIMETHOPRIM
     Route: 048
     Dates: start: 20190129

REACTIONS (18)
  - Kidney infection [Unknown]
  - Vision blurred [Not Recovered/Not Resolved]
  - Ocular hyperaemia [Not Recovered/Not Resolved]
  - Sinus disorder [Not Recovered/Not Resolved]
  - Injection site nodule [Not Recovered/Not Resolved]
  - Upper respiratory tract infection [Not Recovered/Not Resolved]
  - Malaise [Recovered/Resolved]
  - Injection site haemorrhage [Recovered/Resolved]
  - Scab [Not Recovered/Not Resolved]
  - White blood cell disorder [Unknown]
  - Spondylitis [Not Recovered/Not Resolved]
  - White blood cell count increased [Unknown]
  - Renal disorder [Not Recovered/Not Resolved]
  - Cystitis [Unknown]
  - Abdominal discomfort [Not Recovered/Not Resolved]
  - Viral infection [Unknown]
  - Epistaxis [Not Recovered/Not Resolved]
  - Back pain [Not Recovered/Not Resolved]

NARRATIVE: CASE EVENT DATE: 201809
